FAERS Safety Report 17016045 (Version 1)
Quarter: 2019Q4

REPORT INFORMATION
  Report Type: Report from Study
  Country: CO (occurrence: CO)
  Receive Date: 20191111
  Receipt Date: 20191111
  Transmission Date: 20200122
  Serious: Yes (Death, Other)
  Sender: FDA-Public Use
  Company Number: CO-ASTELLAS-2018US043063

PATIENT
  Age: 50 Year
  Sex: Male

DRUGS (3)
  1. TACROLIMUS. [Suspect]
     Active Substance: TACROLIMUS
     Route: 048
  2. TACROLIMUS. [Suspect]
     Active Substance: TACROLIMUS
     Indication: HEART TRANSPLANT
     Dosage: 14 MG 1MG (FOUR CAPSULES) AND 5MG (TWO CAPSULES), ONCE DAILY
     Route: 048
     Dates: start: 20180313
  3. TACROLIMUS. [Suspect]
     Active Substance: TACROLIMUS
     Dosage: 15 MG (3X5MG), ONCE DAILY
     Route: 065
     Dates: start: 201808, end: 201812

REACTIONS (2)
  - Immunosuppressant drug level decreased [Not Recovered/Not Resolved]
  - Cardiac failure [Fatal]

NARRATIVE: CASE EVENT DATE: 20190920
